FAERS Safety Report 5334204-0 (Version None)
Quarter: 2007Q2

REPORT INFORMATION
  Report Type: 
  Country: None (occurrence: None)
  Receive Date: 20070523
  Receipt Date: 20070523
  Transmission Date: 20071010
  Serious: No
  Sender: FDA-Public Use
  Company Number: None

PATIENT
  Age: 64 Year
  Sex: Female
  Weight: 77.1115 kg

DRUGS (1)
  1. MOTRIN [Suspect]
     Indication: PAIN MANAGEMENT
     Dosage: 800MG PRN PO
     Route: 048
     Dates: start: 20050101, end: 20070101

REACTIONS (1)
  - BLOOD PRESSURE DIASTOLIC INCREASED [None]
